FAERS Safety Report 8377702-8 (Version None)
Quarter: 2012Q2

REPORT INFORMATION
  Report Type: 
  Country: None (occurrence: None)
  Receive Date: 20120522
  Receipt Date: 20120515
  Transmission Date: 20120825
  Serious: Yes (Hospitalization)
  Sender: FDA-Public Use
  Company Number: US-GLAXOSMITHKLINE-A0976596A

PATIENT
  Age: 72 Year
  Sex: Female

DRUGS (23)
  1. DILTIAZEM [Concomitant]
  2. METFORMIN HCL [Concomitant]
  3. KLONOPIN [Concomitant]
  4. PERPHENAZINE [Concomitant]
  5. ADVAIR DISKUS 100/50 [Suspect]
     Indication: ASTHMA
     Dosage: 1PUFF TWICE PER DAY
     Route: 055
     Dates: start: 20000101
  6. NEXIUM [Concomitant]
  7. CLONAZEPAM [Concomitant]
  8. LAMICTAL [Concomitant]
  9. ASPIRIN [Concomitant]
  10. DULCOLAX [Concomitant]
  11. GUAIFENESIN [Concomitant]
  12. NOVOLIN N [Concomitant]
  13. METOPROLOL TARTRATE [Concomitant]
  14. KAYEXALATE [Concomitant]
  15. CYMBALTA [Concomitant]
  16. IBUPROFEN [Concomitant]
  17. SINGULAIR [Concomitant]
  18. ATROVENT [Concomitant]
  19. ENULOSE [Concomitant]
  20. UNKNOWN MEDICATION [Concomitant]
  21. TRAMADOL HYDROCHLORIDE [Concomitant]
  22. NOVOLIN R [Concomitant]
  23. ACETAMINOPHEN [Concomitant]

REACTIONS (11)
  - LARYNGITIS [None]
  - WHEEZING [None]
  - DYSPNOEA [None]
  - COUGH [None]
  - DYSPHONIA [None]
  - BLOOD GLUCOSE DECREASED [None]
  - HYPOAESTHESIA [None]
  - MYOCARDIAL INFARCTION [None]
  - BRONCHITIS CHRONIC [None]
  - HEADACHE [None]
  - PARAESTHESIA [None]
